FAERS Safety Report 10049800 (Version 2)
Quarter: 2014Q2

REPORT INFORMATION
  Report Type: Report from Study
  Country: DE (occurrence: DE)
  Receive Date: 20140401
  Receipt Date: 20140514
  Transmission Date: 20141212
  Serious: Yes (Other)
  Sender: FDA-Public Use
  Company Number: DE-BEH-2014041463

PATIENT
  Age: 32 Year
  Sex: Female
  Weight: 64 kg

DRUGS (23)
  1. PRIVIGEN [Suspect]
     Indication: IMMUNODEFICIENCY COMMON VARIABLE
     Dosage: INFUSION RATE: MIN. 1.7 ML/MIN, INFUSION RATE MAX. 4.3 ML/MIN
     Route: 042
     Dates: start: 20100201, end: 20100201
  2. PRIVIGEN [Suspect]
     Dosage: INFUSION RATE: MIN. 3 ML/MIN, INFUSION RATE MAX. 5 ML/MIN
     Route: 042
     Dates: start: 20100217, end: 20100217
  3. PRIVIGEN [Suspect]
     Dosage: INFUSION RATE: MIN. 3 ML/MIN, INFUSION RATE MAX. 5 ML/MIN
     Route: 042
     Dates: start: 20100217, end: 20100217
  4. PRIVIGEN [Suspect]
     Dosage: INFUSION RATE: MIN. 3 ML/MIN, INFUSION RATE MAX. 5 ML/MIN
     Route: 042
     Dates: start: 20100217, end: 20100217
  5. PRIVIGEN [Suspect]
     Dosage: INFUSION RATE: MIN. 3 ML/MIN, INFUSION RATE MAX. 4 ML/MIN
     Route: 042
     Dates: start: 20100224, end: 20100224
  6. PRIVIGEN [Suspect]
     Dosage: INFUSION RATE: MIN. 3 ML/MIN, INFUSION RATE MAX. 4 ML/MIN
     Route: 042
     Dates: start: 20100224, end: 20100224
  7. PRIVIGEN [Suspect]
     Dosage: INFUSION RATE: MIN. 3 ML/MIN, INFUSION RATE MAX. 4 ML/MIN
     Route: 042
     Dates: start: 20100224, end: 20100224
  8. PRIVIGEN [Suspect]
     Dosage: INFUSION RATE: MIN. 3 ML/MIN, INFUSION RATE MAX. 4 ML/MIN
     Route: 042
     Dates: start: 20100305, end: 20100305
  9. PRIVIGEN [Suspect]
     Dosage: INFUSION RATE: MIN. 3 ML/MIN, INFUSION RATE MAX. 4 ML/MIN
     Route: 042
     Dates: start: 20100305, end: 20100305
  10. PRIVIGEN [Suspect]
     Dosage: INFUSION RATE: MIN. 3 ML/MIN, INFUSION RATE MAX. 4 ML/MIN
     Route: 042
     Dates: start: 20100305, end: 20100305
  11. PRIVIGEN [Suspect]
     Dosage: INFUSION RATE: MIN. 3 ML/MIN, INFUSION RATE MAX. 4 ML/MIN
     Route: 042
     Dates: start: 20100317, end: 20100317
  12. PRIVIGEN [Suspect]
     Dosage: INFUSION RATE: MIN. 3 ML/MIN, INFUSION RATE MAX. 4 ML/MIN
     Route: 042
     Dates: start: 20100317, end: 20100317
  13. PRIVIGEN [Suspect]
     Dosage: INFUSION RATE: MIN. 3 ML/MIN, INFUSION RATE MAX. 4 ML/MIN
     Route: 042
     Dates: start: 20100317, end: 20100317
  14. PRIVIGEN [Suspect]
     Dosage: INFUSION RATE: MIN. 3 ML/MIN, INFUSION RATE MAX. 4 ML/MIN
     Route: 042
     Dates: start: 20100419, end: 20100419
  15. PRIVIGEN [Suspect]
     Dosage: INFUSION RATE: MIN. 3 ML/MIN, INFUSION RATE MAX. 4 ML/MIN
     Route: 042
     Dates: start: 20100419, end: 20100419
  16. PRIVIGEN [Suspect]
     Dosage: INFUSION RATE: MIN. 3 ML/MIN, INFUSION RATE MAX. 4 ML/MIN
     Route: 042
     Dates: start: 20100419, end: 20100419
  17. HAEMATE P [Concomitant]
  18. HAEMATE P [Concomitant]
     Indication: PREMEDICATION
     Route: 042
     Dates: start: 20100201, end: 20100201
  19. HAEMATE P [Concomitant]
     Route: 042
     Dates: start: 20100217, end: 20100217
  20. HAEMATE P [Concomitant]
     Route: 042
     Dates: start: 20100224, end: 20100224
  21. HAEMATE P [Concomitant]
     Route: 042
     Dates: start: 20100305, end: 20100305
  22. HAEMATE P [Concomitant]
     Route: 042
     Dates: start: 20100317, end: 20100317
  23. HAEMATE P [Concomitant]
     Route: 042
     Dates: start: 20100419, end: 20100419

REACTIONS (2)
  - Habitual abortion [Unknown]
  - Exposure during pregnancy [Unknown]
